FAERS Safety Report 24772990 (Version 4)
Quarter: 2025Q1

REPORT INFORMATION
  Report Type: Spontaneous
  Country: JP (occurrence: JP)
  Receive Date: 20241225
  Receipt Date: 20250320
  Transmission Date: 20250408
  Serious: Yes (Hospitalization, Disabling)
  Sender: ROCHE
  Company Number: JP-ROCHE-10000164542

PATIENT
  Age: 5 Year
  Sex: Male

DRUGS (2)
  1. XOFLUZA [Suspect]
     Active Substance: BALOXAVIR MARBOXIL
     Indication: Influenza
     Route: 048
     Dates: start: 20241218, end: 20241218
  2. ACETAMINOPHEN [Suspect]
     Active Substance: ACETAMINOPHEN
     Indication: Influenza
     Route: 048
     Dates: start: 20241218

REACTIONS (4)
  - Faeces discoloured [Recovered/Resolved]
  - Epistaxis [Recovered/Resolved]
  - Activated partial thromboplastin time prolonged [Not Recovered/Not Resolved]
  - Gastrointestinal haemorrhage [Recovered/Resolved]

NARRATIVE: CASE EVENT DATE: 20241218
